FAERS Safety Report 25965111 (Version 1)
Quarter: 2025Q4

REPORT INFORMATION
  Report Type: Spontaneous
  Country: US (occurrence: US)
  Receive Date: 20251027
  Receipt Date: 20251027
  Transmission Date: 20260118
  Serious: Yes (Other)
  Sender: BAYER HEALTHCARE LLC
  Company Number: US-BAYER-2025A141306

PATIENT
  Age: 66 Year
  Sex: Male

DRUGS (1)
  1. AFRIN NO DRIP SEVERE CONGESTION [Suspect]
     Active Substance: OXYMETAZOLINE HYDROCHLORIDE
     Indication: Nasal congestion
     Dosage: I USUALLY USE IT 3 TIMES DAY MORNING AFTERNOON LATE AT NIGHT

REACTIONS (2)
  - Drug dependence [None]
  - Product packaging quantity issue [None]
